FAERS Safety Report 10736706 (Version 1)
Quarter: 2015Q1

REPORT INFORMATION
  Report Type: Spontaneous
  Country: GB (occurrence: GB)
  Receive Date: 20150126
  Receipt Date: 20150126
  Transmission Date: 20150721
  Serious: Yes (Life-Threatening)
  Sender: FDA-Public Use
  Company Number: GB-TEVA-535368ISR

PATIENT
  Age: 1 Year
  Sex: Female
  Weight: 15.5 kg

DRUGS (3)
  1. PHENOXIMETHYLPENICILLINUM [Suspect]
     Active Substance: PENICILLIN V
     Indication: TONSILLITIS
     Dosage: ON PRESENTATION TO PAEDIATRIC DAY UNIT PATIENT HAD TAKEN 6 DOSES OF PENICILLIN
     Route: 048
     Dates: start: 20150106, end: 20150108
  2. TRIMETHOPRIM. [Suspect]
     Active Substance: TRIMETHOPRIM
     Indication: URINARY TRACT INFECTION
     Route: 048
     Dates: start: 20141218, end: 20150108
  3. PARACETAMOL [Concomitant]
     Active Substance: ACETAMINOPHEN

REACTIONS (9)
  - Hypophagia [Not Recovered/Not Resolved]
  - Blister [Not Recovered/Not Resolved]
  - Pyrexia [Not Recovered/Not Resolved]
  - Skin fissures [Not Recovered/Not Resolved]
  - Toxic epidermal necrolysis [Not Recovered/Not Resolved]
  - Pain [Not Recovered/Not Resolved]
  - Skin exfoliation [Not Recovered/Not Resolved]
  - Malaise [Not Recovered/Not Resolved]
  - Rash erythematous [Not Recovered/Not Resolved]

NARRATIVE: CASE EVENT DATE: 20150106
